FAERS Safety Report 8317708-8 (Version None)
Quarter: 2012Q2

REPORT INFORMATION
  Report Type: 
  Country: None (occurrence: None)
  Receive Date: 20120427
  Receipt Date: 20120424
  Transmission Date: 20120825
  Serious: No
  Sender: FDA-Public Use
  Company Number: US-PFIZER INC-2012102293

PATIENT
  Sex: Female
  Weight: 77.098 kg

DRUGS (5)
  1. SERTRALINE HYDROCHLORIDE [Suspect]
     Indication: ANXIETY
  2. SERTRALINE HYDROCHLORIDE [Suspect]
     Indication: PANIC ATTACK
  3. MOTRIN [Concomitant]
     Indication: ARTHRALGIA
     Dosage: 600 MG, AS NEEDED
  4. VESICARE [Concomitant]
     Indication: URINARY INCONTINENCE
     Dosage: 100 MG, 2X/DAY
  5. SERTRALINE HYDROCHLORIDE [Suspect]
     Indication: DEPRESSION
     Dosage: 100 MG, 2X/DAY

REACTIONS (1)
  - DRUG INEFFECTIVE [None]
